FAERS Safety Report 12726233 (Version 2)
Quarter: 2016Q3

REPORT INFORMATION
  Report Type: Spontaneous
  Country: US (occurrence: US)
  Receive Date: 20160908
  Receipt Date: 20160913
  Transmission Date: 20161109
  Serious: Yes (Other)
  Sender: FDA-Public Use
  Company Number: US-CELGENEUS-USA-2016090945

PATIENT
  Age: 67 Year
  Sex: Female
  Weight: 145.28 kg

DRUGS (2)
  1. OTEZLA [Suspect]
     Active Substance: APREMILAST
     Indication: PSORIASIS
     Route: 048
     Dates: start: 20160808
  2. OTEZLA [Suspect]
     Active Substance: APREMILAST
     Route: 048
     Dates: start: 20160828, end: 20160902

REACTIONS (5)
  - Blood pressure increased [Unknown]
  - Blood glucose decreased [Unknown]
  - Diarrhoea [Unknown]
  - Dyspnoea [Unknown]
  - Palpitations [Unknown]

NARRATIVE: CASE EVENT DATE: 201608
